FAERS Safety Report 17864143 (Version 1)
Quarter: 2020Q2

REPORT INFORMATION
  Report Type: Spontaneous
  Country: AR (occurrence: AR)
  Receive Date: 20200605
  Receipt Date: 20200605
  Transmission Date: 20200714
  Serious: Yes (Other)
  Sender: FDA-Public Use
  Company Number: AR-EMD SERONO-9166876

PATIENT
  Age: 50 Year
  Sex: Male

DRUGS (1)
  1. REBIF [Suspect]
     Active Substance: INTERFERON BETA-1A
     Indication: MULTIPLE SCLEROSIS

REACTIONS (6)
  - Liver disorder [Unknown]
  - Product administration error [Unknown]
  - Fatigue [Unknown]
  - Sarcoidosis [Unknown]
  - Injection site pain [Unknown]
  - Product dose omission [Unknown]
